FAERS Safety Report 8984895 (Version 1)
Quarter: 2012Q4

REPORT INFORMATION
  Report Type: 
  Country: US (occurrence: US)
  Receive Date: 20121226
  Receipt Date: 20121226
  Transmission Date: 20130627
  Serious: No
  Sender: FDA-Public Use
  Company Number: US-PFIZER INC-2012323359

PATIENT
  Age: 71 Year
  Sex: Male

DRUGS (1)
  1. SUTENT [Suspect]
     Indication: MALIGNANT NEOPLASM OF ABDOMEN
     Dosage: 37.5 mg, 1x/day (25 mg+12.5 mg)
     Dates: start: 20120418

REACTIONS (3)
  - Off label use [Unknown]
  - Disease progression [Unknown]
  - Neoplasm malignant [Unknown]
